FAERS Safety Report 23258792 (Version 1)
Quarter: 2023Q4

REPORT INFORMATION
  Report Type: Spontaneous
  Country: CA (occurrence: CA)
  Receive Date: 20231204
  Receipt Date: 20231204
  Transmission Date: 20240109
  Serious: Yes (Death)
  Sender: FDA-Public Use
  Company Number: CA-FreseniusKabi-FK202319064

PATIENT
  Age: 86 Year
  Sex: Male

DRUGS (1)
  1. AMIODARONE [Suspect]
     Active Substance: AMIODARONE
     Indication: Product used for unknown indication
     Dosage: FORM OF ADMIN: NOT SPECIFIED

REACTIONS (6)
  - Arrhythmia [Fatal]
  - Cardiac arrest [Fatal]
  - Dizziness [Fatal]
  - Incorrect drug administration rate [Fatal]
  - Incorrect route of product administration [Fatal]
  - Product administration error [Fatal]
